FAERS Safety Report 8829142 (Version 1)
Quarter: 2012Q4

REPORT INFORMATION
  Report Type: 
  Country: TR (occurrence: TR)
  Receive Date: 20121008
  Receipt Date: 20121008
  Transmission Date: 20130627
  Serious: Yes (Hospitalization, Other)
  Sender: FDA-Public Use
  Company Number: PHHY2012TR085990

PATIENT
  Age: 45 Year
  Sex: Male

DRUGS (3)
  1. CLOPIDOGREL [Suspect]
     Dosage: 75 mg, UNK
  2. ACETYLSALICYLIC ACID [Interacting]
     Dosage: 100 mg, UNK
  3. HERBAL PREPARATION [Interacting]

REACTIONS (4)
  - Thrombosis in device [Recovered/Resolved]
  - Chest pain [Recovered/Resolved]
  - Device occlusion [Recovered/Resolved]
  - Drug interaction [Unknown]
